FAERS Safety Report 9276045 (Version 2)
Quarter: 2013Q2

REPORT INFORMATION
  Report Type: Spontaneous
  Country: US (occurrence: US)
  Receive Date: 20130507
  Receipt Date: 20130510
  Transmission Date: 20140414
  Serious: Yes (Other)
  Sender: FDA-Public Use
  Company Number: US-PFIZER INC-2013138434

PATIENT
  Age: 91 Year
  Sex: Female

DRUGS (6)
  1. PANTOPRAZOLE [Suspect]
     Dosage: UNK
  2. ASPIRINE [Suspect]
     Dosage: UNK
  3. FOLATE [Suspect]
     Dosage: UNK
  4. IRON [Suspect]
     Dosage: UNK
  5. TOPROL [Suspect]
     Dosage: UNK
  6. COLACE [Suspect]
     Dosage: UNK

REACTIONS (7)
  - Gastrointestinal tract mucosal pigmentation [Unknown]
  - Haematochezia [Unknown]
  - Anaemia [Unknown]
  - Dyspnoea [Unknown]
  - Productive cough [Unknown]
  - Chest discomfort [Unknown]
  - Decreased appetite [Unknown]
